FAERS Safety Report 19177323 (Version 2)
Quarter: 2021Q2

REPORT INFORMATION
  Report Type: Spontaneous
  Country: FR (occurrence: FR)
  Receive Date: 20210425
  Receipt Date: 20210430
  Transmission Date: 20210717
  Serious: Yes (Other)
  Sender: FDA-Public Use
  Company Number: FR-AMGEN-FRASP2021058718

PATIENT
  Age: 13 Year
  Sex: Female
  Weight: 41 kg

DRUGS (4)
  1. LAROXYL [Concomitant]
     Active Substance: AMITRIPTYLINE HYDROCHLORIDE
     Dosage: UNK
  2. GABAPENTIN. [Concomitant]
     Active Substance: GABAPENTIN
     Dosage: UNK
  3. ATARAX [ALPRAZOLAM] [Concomitant]
     Active Substance: ALPRAZOLAM
     Dosage: UNK
  4. XGEVA [Suspect]
     Active Substance: DENOSUMAB
     Indication: FIBROUS DYSPLASIA OF JAW
     Dosage: 120 MILLIGRAM, QMO
     Route: 065
     Dates: start: 201911, end: 202010

REACTIONS (5)
  - Hypercalcaemia [Unknown]
  - Pain in extremity [Unknown]
  - Renal failure [Unknown]
  - Drug ineffective [Unknown]
  - Off label use [Unknown]

NARRATIVE: CASE EVENT DATE: 201911
